FAERS Safety Report 21382619 (Version 2)
Quarter: 2022Q4

REPORT INFORMATION
  Report Type: Other
  Country: TH (occurrence: None)
  Receive Date: 20220927
  Receipt Date: 20221020
  Transmission Date: 20230112
  Serious: Yes (Hospitalization)
  Sender: FDA-Public Use
  Company Number: TH-ROCHE-3183355

PATIENT
  Sex: Male

DRUGS (1)
  1. GAZYVA [Suspect]
     Active Substance: OBINUTUZUMAB
     Indication: Chronic lymphocytic leukaemia
     Route: 065

REACTIONS (5)
  - Anaphylactic reaction [Unknown]
  - Chills [Unknown]
  - Chest discomfort [Unknown]
  - Blood pressure decreased [Unknown]
  - Pyrexia [Unknown]
